FAERS Safety Report 10901035 (Version 1)
Quarter: 2015Q1

REPORT INFORMATION
  Report Type: Spontaneous
  Country: US (occurrence: None)
  Receive Date: 20150303
  Receipt Date: 20150303
  Transmission Date: 20150721
  Serious: Yes (Hospitalization)
  Sender: FDA-Public Use
  Company Number: 2762395

PATIENT
  Age: 73 Year
  Sex: Female

DRUGS (1)
  1. ZOLEDRONIC ACID [Suspect]
     Active Substance: ZOLEDRONIC ACID
     Indication: OSTEOPOROSIS
     Dosage: (1 YEAR) INTRAVENOUS
     Route: 042

REACTIONS (8)
  - Osteonecrosis of jaw [None]
  - Gingivitis [None]
  - Face oedema [None]
  - Tenderness [None]
  - Pathological fracture [None]
  - Gingival discolouration [None]
  - Wound drainage [None]
  - Pain [None]
